FAERS Safety Report 5131034-X (Version None)
Quarter: 2006Q4

REPORT INFORMATION
  Report Type: 
  Country: None (occurrence: None)
  Receive Date: 20061019
  Receipt Date: 20061013
  Transmission Date: 20070319
  Serious: Yes (Hospitalization)
  Sender: FDA-Public Use
  Company Number: US-ROXANE LABORATORIES, INC-2006-BP-12016RO

PATIENT
  Age: 65 Year
  Sex: Male

DRUGS (9)
  1. PREDNISONE TAB [Suspect]
     Indication: PROPHYLAXIS AGAINST TRANSPLANT REJECTION
  2. CYCLOSPORINE [Suspect]
     Indication: PROPHYLAXIS AGAINST TRANSPLANT REJECTION
  3. MYCOPHENOLATE MOFETIL [Suspect]
     Indication: PROPHYLAXIS AGAINST TRANSPLANT REJECTION
  4. GANCICLOVIR [Concomitant]
     Indication: CYTOMEGALOVIRUS INFECTION
  5. NITAZOXANIDE [Concomitant]
     Indication: GASTROENTERITIS CRYPTOSPORIDIAL
  6. DAPSONE [Concomitant]
     Indication: LEPROSY
  7. MINOCYCLINE HCL [Concomitant]
     Indication: LEPROSY
  8. MOXIFLOXACIN HCL [Concomitant]
     Indication: LEPROSY
  9. ETHIONAMIDE [Concomitant]
     Indication: LEPROSY

REACTIONS (16)
  - ASTHENIA [None]
  - CHILLS [None]
  - CYTOMEGALOVIRUS ANTIGEN POSITIVE [None]
  - DIARRHOEA [None]
  - DRUG TOXICITY [None]
  - GASTROENTERITIS CRYPTOSPORIDIAL [None]
  - HAEMODIALYSIS [None]
  - LEPROMATOUS LEPROSY [None]
  - LEPROSY [None]
  - MALAISE [None]
  - NAUSEA [None]
  - PYREXIA [None]
  - RENAL FAILURE [None]
  - RENAL TRANSPLANT [None]
  - SKIN LESION [None]
  - WEIGHT DECREASED [None]
